FAERS Safety Report 7604752-9 (Version None)
Quarter: 2011Q3

REPORT INFORMATION
  Report Type: 
  Country: None (occurrence: None)
  Receive Date: 20110712
  Receipt Date: 20110701
  Transmission Date: 20111222
  Serious: Yes (Hospitalization, Other)
  Sender: FDA-Public Use
  Company Number: PHHO2010JP00822

PATIENT
  Sex: Male
  Weight: 13 kg

DRUGS (8)
  1. NAPROXEN [Concomitant]
     Indication: CHRONIC INFANTILE NEUROLOGICAL CUTANEOUS AND ARTICULAR SYNDROME
     Dosage: 480 MG, UNK
     Route: 048
     Dates: start: 20100802
  2. SULFAMETHOXAZOLE AND TRIMETHOPRIM [Concomitant]
  3. RHEUMATREX [Concomitant]
  4. ILARIS [Suspect]
     Indication: CRYOPYRIN ASSOCIATED PERIODIC SYNDROME
     Dosage: 26 MG, UNK
     Route: 058
     Dates: start: 20100106
  5. ILARIS [Suspect]
     Dosage: 31 MG, UNK
     Route: 058
     Dates: start: 20110524
  6. FOLIC ACID [Concomitant]
  7. ILARIS [Suspect]
     Dosage: 26.4 MG, UNK
     Route: 058
     Dates: start: 20100224
  8. ONON [Concomitant]
     Indication: RHINITIS ALLERGIC
     Dosage: 200 MG, UNK
     Route: 048
     Dates: start: 20110524

REACTIONS (15)
  - ANAEMIA [None]
  - HAEMOPHILUS INFECTION [None]
  - PNEUMONIA STREPTOCOCCAL [None]
  - HYPOXIA [None]
  - LUNG DISORDER [None]
  - UPPER RESPIRATORY TRACT INFECTION [None]
  - STAPHYLOCOCCAL INFECTION [None]
  - PYREXIA [None]
  - DISSEMINATED INTRAVASCULAR COAGULATION [None]
  - NASAL OBSTRUCTION [None]
  - VOMITING [None]
  - PLEURAL EFFUSION [None]
  - DECREASED APPETITE [None]
  - PULMONARY OEDEMA [None]
  - HYPOALBUMINAEMIA [None]
